FAERS Safety Report 22616443 (Version 2)
Quarter: 2023Q2

REPORT INFORMATION
  Report Type: Report from Study
  Country: US (occurrence: US)
  Receive Date: 20230619
  Receipt Date: 20230630
  Transmission Date: 20230722
  Serious: Yes (Death)
  Sender: FDA-Public Use
  Company Number: US-AMX-003389

PATIENT
  Age: 77 Year
  Sex: Female

DRUGS (1)
  1. RELYVRIO [Suspect]
     Active Substance: SODIUM PHENYLBUTYRATE\TAURURSODIOL
     Indication: Amyotrophic lateral sclerosis
     Dosage: 1 SACHET ONCE DAILY FOR 3WKS, THEN 1 SACHET TWICE DAILY.
     Route: 048
     Dates: start: 20230330, end: 20230421

REACTIONS (1)
  - Disease complication [Fatal]

NARRATIVE: CASE EVENT DATE: 20230421
